FAERS Safety Report 4856839-1 (Version None)
Quarter: 2005Q4

REPORT INFORMATION
  Report Type: 
  Country: None (occurrence: None)
  Receive Date: 20051219
  Receipt Date: 20050128
  Transmission Date: 20060501
  Serious: No
  Sender: FDA-Public Use
  Company Number: US-GLAXOSMITHKLINE-A0542814A

PATIENT
  Age: 43 Year
  Sex: Female

DRUGS (3)
  1. NICODERM CQ [Suspect]
     Dates: start: 20050123, end: 20050127
  2. CAFFEINE [Concomitant]
  3. NICOTINE [Concomitant]

REACTIONS (7)
  - ANXIETY [None]
  - CRYING [None]
  - DYSPNOEA [None]
  - FLUSHING [None]
  - INSOMNIA [None]
  - NICOTINE DEPENDENCE [None]
  - SENSORY DISTURBANCE [None]
